FAERS Safety Report 13405855 (Version 1)
Quarter: 2017Q2

REPORT INFORMATION
  Report Type: Spontaneous
  Country: US (occurrence: US)
  Receive Date: 20170405
  Receipt Date: 20170405
  Transmission Date: 20170830
  Serious: Yes (Other)
  Sender: FDA-Public Use
  Company Number: US-GLAXOSMITHKLINE-US2017GSK047169

PATIENT
  Age: 44 Year
  Sex: Female

DRUGS (4)
  1. IBUPROFEN. [Suspect]
     Active Substance: IBUPROFEN
     Indication: PRODUCT USED FOR UNKNOWN INDICATION
  2. FLOVENT [Suspect]
     Active Substance: FLUTICASONE PROPIONATE
     Indication: PRODUCT USED FOR UNKNOWN INDICATION
  3. NUCALA [Suspect]
     Active Substance: MEPOLIZUMAB
     Indication: ASTHMA
     Dosage: UNK, CYC
     Route: 058
     Dates: start: 201610, end: 201702
  4. SEREVENT DISKUS [Suspect]
     Active Substance: SALMETEROL XINAFOATE
     Indication: PRODUCT USED FOR UNKNOWN INDICATION

REACTIONS (25)
  - Respiratory tract infection [Unknown]
  - Pruritus [Recovering/Resolving]
  - Influenza like illness [Recovered/Resolved]
  - Hypersensitivity [Unknown]
  - Nausea [Recovered/Resolved]
  - Toothache [Unknown]
  - Contraindicated product administered [Unknown]
  - Vertigo [Recovering/Resolving]
  - Headache [Recovering/Resolving]
  - Dizziness [Recovering/Resolving]
  - Product availability issue [Recovered/Resolved]
  - Mobility decreased [Unknown]
  - Pain [Unknown]
  - Bone pain [Recovered/Resolved]
  - Ear pain [Unknown]
  - Vomiting [Recovered/Resolved]
  - Myalgia [Recovered/Resolved]
  - Bronchitis [Unknown]
  - Drug hypersensitivity [Unknown]
  - Muscle spasms [Recovered/Resolved]
  - Back pain [Recovered/Resolved]
  - Tremor [Recovered/Resolved]
  - Chills [Recovered/Resolved]
  - Decreased activity [Unknown]
  - Intervertebral disc protrusion [Unknown]

NARRATIVE: CASE EVENT DATE: 201701
